FAERS Safety Report 21081504 (Version 1)
Quarter: 2022Q3

REPORT INFORMATION
  Report Type: Spontaneous
  Country: ES (occurrence: ES)
  Receive Date: 20220714
  Receipt Date: 20220714
  Transmission Date: 20221027
  Serious: Yes (Hospitalization, Other)
  Sender: FDA-Public Use
  Company Number: ES-MYLANLABS-2022M1078307

PATIENT
  Age: 5 Decade
  Sex: Female

DRUGS (13)
  1. QUETIAPINE [Suspect]
     Active Substance: QUETIAPINE
     Indication: Catatonia
     Dosage: 500 MILLIGRAM
     Route: 065
  2. TOPIRAMATE [Suspect]
     Active Substance: TOPIRAMATE
     Indication: Catatonia
     Dosage: 50 MILLIGRAM
     Route: 065
  3. VENLAFAXINE [Suspect]
     Active Substance: VENLAFAXINE HYDROCHLORIDE
     Indication: Catatonia
     Dosage: 300 MILLIGRAM, QD
     Route: 065
  4. MIRTAZAPINE [Suspect]
     Active Substance: MIRTAZAPINE
     Indication: Catatonia
     Dosage: UNK
     Route: 065
  5. TRAMADOL [Suspect]
     Active Substance: TRAMADOL
     Indication: Product used for unknown indication
     Dosage: UNK
     Route: 065
  6. LORAZEPAM [Suspect]
     Active Substance: LORAZEPAM
     Indication: Catatonia
     Dosage: 30 MILLIGRAM
     Route: 065
  7. LORAZEPAM [Suspect]
     Active Substance: LORAZEPAM
     Dosage: 9 MILLIGRAM, QD
     Route: 065
  8. CLORAZEPATE DIPOTASSIUM [Suspect]
     Active Substance: CLORAZEPATE DIPOTASSIUM
     Indication: Catatonia
     Dosage: 100 MILLIGRAM
     Route: 065
  9. PALIPERIDONE [Suspect]
     Active Substance: PALIPERIDONE
     Indication: Catatonia
     Dosage: 9 MILLIGRAM, QD
     Route: 065
  10. GABAPENTIN [Suspect]
     Active Substance: GABAPENTIN
     Indication: Catatonia
     Dosage: 2400 MILLIGRAM, QD
     Route: 065
  11. ENOXAPARIN [Suspect]
     Active Substance: ENOXAPARIN
     Indication: Prophylaxis
     Dosage: UNK UNK, QD
     Route: 065
  12. ENOXAPARIN [Suspect]
     Active Substance: ENOXAPARIN
     Indication: Deep vein thrombosis
     Dosage: 70 INTERNATIONAL UNIT, BID
     Route: 065
  13. MORPHINE [Suspect]
     Active Substance: MORPHINE
     Indication: Product used for unknown indication
     Dosage: UNK
     Route: 065

REACTIONS (2)
  - Drug ineffective [Unknown]
  - Drug abuse [Unknown]
